FAERS Safety Report 6807100-7 (Version None)
Quarter: 2010Q2

REPORT INFORMATION
  Report Type: 
  Country: None (occurrence: None)
  Receive Date: 20100629
  Receipt Date: 20080821
  Transmission Date: 20101027
  Serious: No
  Sender: FDA-Public Use
  Company Number: US-PFIZER INC-2008043803

PATIENT
  Sex: Female

DRUGS (5)
  1. REVATIO [Suspect]
     Dates: start: 20061001
  2. URSODIOL [Concomitant]
  3. HYDROXYZINE [Concomitant]
  4. PHENOBARBITAL [Concomitant]
  5. CYCLOSPORINE [Concomitant]

REACTIONS (1)
  - ALOPECIA [None]
